FAERS Safety Report 8764338 (Version 2)
Quarter: 2012Q4

REPORT INFORMATION
  Report Type: 
  Country: US (occurrence: US)
  Receive Date: 20120831
  Receipt Date: 20121218
  Transmission Date: 20130627
  Serious: Yes (Other)
  Sender: FDA-Public Use
  Company Number: PHEH2010US003940

PATIENT
  Sex: Female

DRUGS (5)
  1. ZOMETA (ZOLEDRONATE) UNKNOWN [Suspect]
  2. ABRAXANE (PACLITAXEL) INJECTION [Concomitant]
     Dosage: UNK
  3. AVASTIN (BEVACIZUMAB) INJECTION [Concomitant]
     Dosage: UNK
  4. PROCRIT (EPOETIN ALFA) INJECTION [Concomitant]
     Dosage: UNK
  5. ALOXI (PALONOSETRON HYDROCHLORIDE) INJECTION [Concomitant]
     Dosage: UNK

REACTIONS (8)
  - Osteonecrosis of jaw [Unknown]
  - Oedema mouth [Unknown]
  - Back pain [Unknown]
  - Anaemia [Unknown]
  - Hearing impaired [Unknown]
  - Otitis externa [Unknown]
  - Weight increased [Unknown]
  - Arthralgia [None]
